FAERS Safety Report 21975633 (Version 1)
Quarter: 2023Q1

REPORT INFORMATION
  Report Type: Spontaneous
  Country: DE (occurrence: DE)
  Receive Date: 20230210
  Receipt Date: 20230210
  Transmission Date: 20230417
  Serious: Yes (Hospitalization)
  Sender: FDA-Public Use
  Company Number: None

PATIENT
  Age: 88 Year
  Sex: Female

DRUGS (1)
  1. LEVETIRACETAM [Suspect]
     Active Substance: LEVETIRACETAM
     Indication: Product used for unknown indication
     Dosage: 250 MG, BID (2X)

REACTIONS (4)
  - Cerebrovascular accident [Unknown]
  - Apathy [Unknown]
  - Unresponsive to stimuli [Unknown]
  - Epilepsy [Unknown]

NARRATIVE: CASE EVENT DATE: 20230122
